FAERS Safety Report 5588858-4 (Version None)
Quarter: 2007Q4

REPORT INFORMATION
  Report Type: 
  Country: None (occurrence: None)
  Receive Date: 20071212
  Receipt Date: 20070924
  Transmission Date: 20080405
  Serious: No
  Sender: FDA-Public Use
  Company Number: 002#4#2007-00237

PATIENT
  Age: 47 Year
  Sex: Male
  Weight: 140 kg

DRUGS (16)
  1. ROTIGOTINE(DOSE UNKNOWN), PATCH (SILICONE) (ROTIGOTINE) [Suspect]
     Indication: PARKINSON'S DISEASE
     Dosage: 4.5MG,,TRANSDERMAL 9MG,,TRANSDERMAL 13.5MG,,TRANSDERMAL 18MG,,TRANSDERMAL
     Route: 062
     Dates: start: 20021013, end: 20021022
  2. ROTIGOTINE(DOSE UNKNOWN), PATCH (SILICONE) (ROTIGOTINE) [Suspect]
     Indication: PARKINSON'S DISEASE
     Dosage: 4.5MG,,TRANSDERMAL 9MG,,TRANSDERMAL 13.5MG,,TRANSDERMAL 18MG,,TRANSDERMAL
     Route: 062
     Dates: start: 20021022, end: 20021031
  3. ROTIGOTINE(DOSE UNKNOWN), PATCH (SILICONE) (ROTIGOTINE) [Suspect]
     Indication: PARKINSON'S DISEASE
     Dosage: 4.5MG,,TRANSDERMAL 9MG,,TRANSDERMAL 13.5MG,,TRANSDERMAL 18MG,,TRANSDERMAL
     Route: 062
     Dates: start: 20021031, end: 20030717
  4. ROTIGOTINE(DOSE UNKNOWN), PATCH (SILICONE) (ROTIGOTINE) [Suspect]
     Indication: PARKINSON'S DISEASE
     Dosage: 4.5MG,,TRANSDERMAL 9MG,,TRANSDERMAL 13.5MG,,TRANSDERMAL 18MG,,TRANSDERMAL
     Route: 062
     Dates: start: 20030717, end: 20050712
  5. ASPIRIN [Concomitant]
  6. WELLBUTRIN [Concomitant]
  7. VITAMIN CAP [Concomitant]
  8. FLU SHOT [Concomitant]
  9. NAPROXEN [Concomitant]
  10. VIOXX [Concomitant]
  11. VICOPROFEN [Concomitant]
  12. ELDEPRYL [Concomitant]
  13. SINEMET [Concomitant]
  14. SINEMET CR [Concomitant]
  15. TRAMADOL HCL [Concomitant]
  16. STALEVO 100 [Concomitant]

REACTIONS (7)
  - ANXIETY [None]
  - DEPRESSION [None]
  - EMOTIONAL DISTRESS [None]
  - INJURY [None]
  - OBSESSIVE-COMPULSIVE PERSONALITY DISORDER [None]
  - PAIN [None]
  - PATHOLOGICAL GAMBLING [None]
